FAERS Safety Report 12496211 (Version 1)
Quarter: 2016Q2

REPORT INFORMATION
  Report Type: Spontaneous
  Country: MX (occurrence: MX)
  Receive Date: 20160624
  Receipt Date: 20160624
  Transmission Date: 20160815
  Serious: Yes (Hospitalization)
  Sender: FDA-Public Use
  Company Number: MX-PFIZER INC-2016311647

PATIENT
  Age: 58 Year
  Sex: Male
  Weight: 95 kg

DRUGS (1)
  1. LIPITOR [Suspect]
     Active Substance: ATORVASTATIN CALCIUM
     Dosage: UNK
     Route: 048
     Dates: start: 2012

REACTIONS (1)
  - Arterial occlusive disease [Recovering/Resolving]

NARRATIVE: CASE EVENT DATE: 20160618
